FAERS Safety Report 19929705 (Version 3)
Quarter: 2021Q4

REPORT INFORMATION
  Report Type: Report from Study
  Country: NL (occurrence: NL)
  Receive Date: 20211007
  Receipt Date: 20211228
  Transmission Date: 20220304
  Serious: Yes (Other)
  Sender: FDA-Public Use
  Company Number: NL-ASTRAZENECA-2021-24105

PATIENT
  Age: 59 Year
  Sex: Male

DRUGS (19)
  1. TRASTUZUMAB DERUXTECAN [Suspect]
     Active Substance: TRASTUZUMAB DERUXTECAN
     Indication: HER2 positive gastric cancer
     Dosage: 6.4 MG/KG, ONCE EVERY 3 WK
     Route: 042
     Dates: start: 20210421, end: 20210421
  2. TRASTUZUMAB DERUXTECAN [Suspect]
     Active Substance: TRASTUZUMAB DERUXTECAN
     Dosage: 6.4 MG/KG, ONCE EVERY 3 WK
     Route: 042
     Dates: start: 20210512, end: 20210512
  3. TRASTUZUMAB DERUXTECAN [Suspect]
     Active Substance: TRASTUZUMAB DERUXTECAN
     Dosage: 6.4 MG/KG, ONCE EVERY 3 WK
     Route: 042
     Dates: start: 20210602, end: 20210602
  4. TRASTUZUMAB DERUXTECAN [Suspect]
     Active Substance: TRASTUZUMAB DERUXTECAN
     Dosage: 5.4 MG/KG, ONCE EVERY 3 WK
     Route: 042
     Dates: start: 20210621, end: 20210621
  5. DURVALUMAB [Suspect]
     Active Substance: DURVALUMAB
     Indication: HER2 positive gastric cancer
     Dosage: 1120 MG, ONCE EVERY 3 WK
     Route: 042
     Dates: start: 20210421, end: 20210421
  6. DURVALUMAB [Suspect]
     Active Substance: DURVALUMAB
     Dosage: 1120 MG, ONCE EVERY 3 WK
     Route: 042
     Dates: start: 20210512, end: 20210512
  7. DURVALUMAB [Suspect]
     Active Substance: DURVALUMAB
     Dosage: 1120 MG, ONCE EVERY 3 WK
     Route: 042
     Dates: start: 20210602, end: 20210602
  8. CAPECITABINE [Suspect]
     Active Substance: CAPECITABINE
     Indication: HER2 positive gastric cancer
     Dosage: 1000 MG/M2, ONCE EVERY 3 WK
     Route: 048
     Dates: start: 20210421, end: 20210504
  9. CAPECITABINE [Suspect]
     Active Substance: CAPECITABINE
     Dosage: 1000 MG/M2, ONCE EVERY 3 WK
     Route: 048
     Dates: start: 20210513, end: 20210526
  10. CAPECITABINE [Suspect]
     Active Substance: CAPECITABINE
     Dosage: 1000 MG/M2, ONCE EVERY 3 WK
     Route: 048
     Dates: start: 20210602, end: 20210615
  11. CAPECITABINE [Suspect]
     Active Substance: CAPECITABINE
     Dosage: 1000 MG/M2, ONCE EVERY 3 WK
     Route: 048
     Dates: start: 20210720, end: 20210802
  12. EDOXABAN [Concomitant]
     Active Substance: EDOXABAN
     Indication: Deep vein thrombosis
     Route: 048
     Dates: start: 20200801
  13. ONDANSETRON [Concomitant]
     Active Substance: ONDANSETRON
     Indication: Premedication
     Dosage: 8 MG
     Route: 048
     Dates: start: 20210428
  14. ONDANSETRON [Concomitant]
     Active Substance: ONDANSETRON
     Indication: Prophylaxis of nausea and vomiting
  15. FENTANYL [Concomitant]
     Active Substance: FENTANYL
     Indication: Pain prophylaxis
     Dosage: 1.0 PATCH, 25 MICROGRAM/HOUR  EVERY 3 DAYS
     Route: 003
     Dates: start: 20210421
  16. METOCLOPRAMIDE [Concomitant]
     Active Substance: METOCLOPRAMIDE
     Indication: Nausea
     Dosage: 10 MG
     Route: 048
     Dates: start: 20210428
  17. DEXAMETHASONE [Concomitant]
     Active Substance: DEXAMETHASONE
     Indication: Nausea
     Dosage: 8 MG
     Route: 048
     Dates: start: 20210505
  18. PREDNISONE [Concomitant]
     Active Substance: PREDNISONE
     Indication: Blood bilirubin increased
     Dosage: 80 MG
     Route: 048
     Dates: start: 20210630, end: 20210706
  19. BACLOFEN [Concomitant]
     Active Substance: BACLOFEN
     Indication: Muscle spasms
     Dosage: 5 MG
     Route: 048
     Dates: start: 20210618

REACTIONS (1)
  - Drug-induced liver injury [Recovered/Resolved]

NARRATIVE: CASE EVENT DATE: 20210630
